FAERS Safety Report 10975057 (Version 3)
Quarter: 2015Q2

REPORT INFORMATION
  Report Type: Report from Study
  Country: US (occurrence: US)
  Receive Date: 20150401
  Receipt Date: 20150618
  Transmission Date: 20150821
  Serious: Yes (Hospitalization)
  Sender: FDA-Public Use
  Company Number: US-ACTELION-A-NJ2015-115321

PATIENT
  Age: 70 Year
  Sex: Female
  Weight: 56.24 kg

DRUGS (19)
  1. CANAGLIFLOZIN [Concomitant]
     Active Substance: CANAGLIFLOZIN
  2. ALLOPURINOL. [Concomitant]
     Active Substance: ALLOPURINOL
  3. IFEREX [Concomitant]
  4. ASPIRIN. [Concomitant]
     Active Substance: ASPIRIN
  5. GLYBURIDE. [Concomitant]
     Active Substance: GLYBURIDE
  6. COUMADIN [Concomitant]
     Active Substance: WARFARIN SODIUM
  7. VITAMIN D [Concomitant]
     Active Substance: CHOLECALCIFEROL
  8. MAGNESIUM OXIDE. [Concomitant]
     Active Substance: MAGNESIUM OXIDE
  9. METFORMIN [Concomitant]
     Active Substance: METFORMIN HYDROCHLORIDE
  10. REVATIO [Concomitant]
     Active Substance: SILDENAFIL CITRATE
  11. CITALOPRAM [Concomitant]
     Active Substance: CITALOPRAM HYDROBROMIDE
  12. SIMVASTATIN. [Concomitant]
     Active Substance: SIMVASTATIN
  13. OMEPRAZOLE. [Concomitant]
     Active Substance: OMEPRAZOLE
  14. JANUVIA [Concomitant]
     Active Substance: SITAGLIPTIN PHOSPHATE
  15. CARVEDILOL. [Concomitant]
     Active Substance: CARVEDILOL
  16. DIGOXIN. [Concomitant]
     Active Substance: DIGOXIN
  17. MACITENTAN [Suspect]
     Active Substance: MACITENTAN
     Indication: PULMONARY ARTERIAL HYPERTENSION
     Dosage: 10 MG, QD
     Route: 048
  18. TORSEMIDE. [Concomitant]
     Active Substance: TORSEMIDE
  19. TEMAZEPAM. [Concomitant]
     Active Substance: TEMAZEPAM

REACTIONS (19)
  - Chest pain [Unknown]
  - Cystitis [Unknown]
  - Rhinorrhoea [Unknown]
  - Faeces discoloured [Unknown]
  - Productive cough [Unknown]
  - Decreased appetite [Unknown]
  - Diarrhoea [Recovered/Resolved]
  - Abdominal discomfort [Recovered/Resolved]
  - Dyspnoea exertional [Not Recovered/Not Resolved]
  - Chest discomfort [Unknown]
  - Dysphonia [Unknown]
  - Heart rate abnormal [Unknown]
  - Dizziness [Unknown]
  - Bladder repair [Unknown]
  - Pyrexia [Unknown]
  - Nausea [Unknown]
  - Vomiting [Unknown]
  - Palpitations [Unknown]
  - Fatigue [Unknown]
